FAERS Safety Report 17041976 (Version 1)
Quarter: 2019Q4

REPORT INFORMATION
  Report Type: Report from Study
  Country: IE (occurrence: IE)
  Receive Date: 20191118
  Receipt Date: 20191118
  Transmission Date: 20200122
  Serious: Yes (Other)
  Sender: FDA-Public Use
  Company Number: PHHY2015IE081574

PATIENT
  Age: 31 Year
  Sex: Female

DRUGS (1)
  1. GILENYA [Suspect]
     Active Substance: FINGOLIMOD HYDROCHLORIDE
     Indication: MULTIPLE SCLEROSIS
     Dosage: QD
     Route: 048
     Dates: start: 20140828

REACTIONS (9)
  - Pupillary reflex impaired [Unknown]
  - Clonus [Unknown]
  - Dysdiadochokinesis [Unknown]
  - White blood cell count decreased [Unknown]
  - Vitamin B12 deficiency [Unknown]
  - Lymphocyte count decreased [Unknown]
  - Fatigue [Unknown]
  - Sinusitis [Unknown]
  - Gait disturbance [Unknown]

NARRATIVE: CASE EVENT DATE: 20150101
